FAERS Safety Report 23527702 (Version 1)
Quarter: 2024Q1

REPORT INFORMATION
  Report Type: Spontaneous
  Country: US (occurrence: None)
  Receive Date: 20240215
  Receipt Date: 20240215
  Transmission Date: 20240410
  Serious: Yes (Disabling, Other)
  Sender: FDA-Public Use
  Company Number: None

PATIENT
  Age: 71 Year
  Sex: Female
  Weight: 81.64 kg

DRUGS (1)
  1. TEPEZZA [Suspect]
     Active Substance: TEPROTUMUMAB-TRBW
     Indication: Endocrine ophthalmopathy
     Dosage: OTHER FREQUENCY : EVERY 6 WEEKS;?
     Route: 042
     Dates: start: 20230515, end: 20240102

REACTIONS (10)
  - Hypoacusis [None]
  - Diarrhoea [None]
  - Muscle spasms [None]
  - Decreased appetite [None]
  - Fatigue [None]
  - Infusion related reaction [None]
  - Weight decreased [None]
  - COVID-19 [None]
  - Skin exfoliation [None]
  - Deafness [None]

NARRATIVE: CASE EVENT DATE: 20230626
